FAERS Safety Report 9235959 (Version 1)
Quarter: 2013Q2

REPORT INFORMATION
  Report Type: Spontaneous
  Country: US (occurrence: US)
  Receive Date: 20130417
  Receipt Date: 20130417
  Transmission Date: 20140414
  Serious: No
  Sender: FDA-Public Use
  Company Number: US-BAYER-2013-045603

PATIENT
  Age: 48 Year
  Sex: Male

DRUGS (7)
  1. AVELOX [Suspect]
     Indication: BRONCHITIS
     Dosage: 400 MG, UNK
     Route: 048
     Dates: start: 20130402
  2. ZYRTEC [Concomitant]
  3. FLONASE [Concomitant]
  4. ROBAXIN [Concomitant]
  5. VALIUM [Concomitant]
  6. ATENOLOL [Concomitant]
  7. GABAPENTIN [Concomitant]

REACTIONS (4)
  - Vision blurred [Not Recovered/Not Resolved]
  - Dizziness [Not Recovered/Not Resolved]
  - Asthenia [Not Recovered/Not Resolved]
  - Rash [Not Recovered/Not Resolved]
